FAERS Safety Report 7777546-1 (Version None)
Quarter: 2011Q3

REPORT INFORMATION
  Report Type: 
  Country: None (occurrence: None)
  Receive Date: 20110926
  Receipt Date: 20110919
  Transmission Date: 20111222
  Serious: Yes (Hospitalization)
  Sender: FDA-Public Use
  Company Number: US-ABBOTT-11P-163-0856445-00

PATIENT
  Sex: Female
  Weight: 72.64 kg

DRUGS (2)
  1. BISOPROLOL FUMARATE [Suspect]
     Indication: PALPITATIONS
     Route: 048
     Dates: start: 20110830, end: 20110901
  2. SYNTHROID [Suspect]
     Indication: HYPOTHYROIDISM
     Dosage: DAILY, IN AM
     Route: 048
     Dates: end: 20110918

REACTIONS (6)
  - DIZZINESS [None]
  - DRUG DOSE OMISSION [None]
  - HEADACHE [None]
  - CARDIOVASCULAR DISORDER [None]
  - PRODUCT COLOUR ISSUE [None]
  - PALPITATIONS [None]
